FAERS Safety Report 5761558-3 (Version None)
Quarter: 2008Q2

REPORT INFORMATION
  Report Type: 
  Country: None (occurrence: None)
  Receive Date: 20080606
  Receipt Date: 20080527
  Transmission Date: 20081010
  Serious: Yes (Other)
  Sender: FDA-Public Use
  Company Number: US-PFIZER INC-2008038137

PATIENT
  Sex: Female
  Weight: 46.7 kg

DRUGS (4)
  1. CHANTIX [Suspect]
     Indication: SMOKING CESSATION THERAPY
     Dates: start: 20080420, end: 20080429
  2. CHANTIX [Suspect]
     Indication: CHRONIC OBSTRUCTIVE PULMONARY DISEASE
  3. XANAX [Concomitant]
     Indication: ANXIETY
  4. CARISOPRODOL [Concomitant]
     Indication: MUSCLE SPASMS

REACTIONS (2)
  - MUSCLE SPASMS [None]
  - RASH VESICULAR [None]
